FAERS Safety Report 10364473 (Version 1)
Quarter: 2014Q3

REPORT INFORMATION
  Report Type: Spontaneous
  Country: US (occurrence: None)
  Receive Date: 20140801
  Receipt Date: 20140801
  Transmission Date: 20150326
  Serious: Yes (Hospitalization, Other)
  Sender: FDA-Public Use
  Company Number: 2014-001798

PATIENT
  Age: 58 Year
  Sex: Female
  Weight: 88.4 kg

DRUGS (15)
  1. BONIVA [Suspect]
     Active Substance: IBANDRONATE SODIUM
     Indication: OSTEOPOROSIS PROPHYLAXIS
     Route: 048
     Dates: start: 20060421, end: 201205
  2. NEXIUM [Concomitant]
     Active Substance: ESOMEPRAZOLE MAGNESIUM
  3. ALBUTEROL (SALBUTAMOL) [Concomitant]
     Active Substance: ALBUTEROL
  4. IBUPROFEN. [Concomitant]
     Active Substance: IBUPROFEN
  5. DESIPRAMINE [Concomitant]
     Active Substance: DESIPRAMINE
  6. ALLEGRA (FEXOFENADINE HYDOCHLORIDE) [Concomitant]
  7. ADVAIR DISKUS [Concomitant]
     Active Substance: FLUTICASONE PROPIONATE\SALMETEROL XINAFOATE
  8. OPTIVAR (AZELASTINE HYDROCHLORIDE) [Concomitant]
  9. SINGULAIR [Concomitant]
     Active Substance: MONTELUKAST SODIUM
  10. ACTONEL [Suspect]
     Active Substance: RISEDRONATE SODIUM
     Indication: OSTEOPOROSIS PROPHYLAXIS
     Route: 048
     Dates: start: 20021205, end: 200604
  11. CLENIA (SULFACETAMIDE SODIUM, SULFUR) [Concomitant]
  12. CLINDAMYCIN [Concomitant]
     Active Substance: CLINDAMYCIN\CLINDAMYCIN PHOSPHATE
  13. METROGEL (METRONIDAZOLE) [Concomitant]
  14. ZYRTEC-D (CETIRIZINE HYDROCHLORIDE, PSEUDOEPHREDRINE HYDROCHLORIDE) [Concomitant]
  15. TRIMOX (SULFAMETHOXAZOLE, TRIMETHOPRIM) [Concomitant]

REACTIONS (8)
  - Stress fracture [None]
  - Low turnover osteopathy [None]
  - Fall [None]
  - Pathological fracture [None]
  - Femur fracture [None]
  - Pain in extremity [None]
  - Pain [None]
  - Bone disorder [None]

NARRATIVE: CASE EVENT DATE: 2011
